FAERS Safety Report 6209148-2 (Version None)
Quarter: 2009Q2

REPORT INFORMATION
  Report Type: 
  Country: None (occurrence: None)
  Receive Date: 20090529
  Receipt Date: 20090520
  Transmission Date: 20091009
  Serious: Yes (Other)
  Sender: FDA-Public Use
  Company Number: US-JNJFOC-20090107192

PATIENT
  Sex: Male
  Weight: 93.35 kg

DRUGS (9)
  1. INVEGA [Suspect]
     Indication: SCHIZOPHRENIA
     Route: 048
  2. MULTI-VITAMIN [Concomitant]
     Indication: NUTRITIONAL SUPPORT
     Route: 048
  3. LACTAID [Concomitant]
     Indication: LACTOSE INTOLERANCE
     Route: 048
  4. DDAVP [Concomitant]
     Indication: ENURESIS
     Dosage: 2 PUFFS AT 9 PM
     Route: 055
  5. LORATADINE [Concomitant]
     Indication: MULTIPLE ALLERGIES
     Route: 048
  6. SIMETHICONE [Concomitant]
     Indication: FLATULENCE
     Route: 048
  7. LORAZEPAM [Concomitant]
     Indication: AGITATION
     Route: 048
  8. ACETAMINOPHEN [Concomitant]
     Indication: PAIN
     Route: 048
  9. IBUPROPHEN [Concomitant]
     Indication: PAIN
     Route: 048

REACTIONS (2)
  - NEUTROPHIL COUNT DECREASED [None]
  - WHITE BLOOD CELL COUNT DECREASED [None]
